FAERS Safety Report 21336394 (Version 1)
Quarter: 2022Q3

REPORT INFORMATION
  Report Type: Spontaneous
  Country: ES (occurrence: ES)
  Receive Date: 20220915
  Receipt Date: 20220915
  Transmission Date: 20221026
  Serious: Yes (Death)
  Sender: FDA-Public Use
  Company Number: None

PATIENT
  Age: 72 Year
  Sex: Male

DRUGS (15)
  1. CARBOPLATIN [Suspect]
     Active Substance: CARBOPLATIN
     Indication: Lung neoplasm malignant
     Dosage: 479.72 MG UNA DOSIS ,  CARBOPLATINO (2323A) , THERAPY END DATE : NASK
     Route: 065
     Dates: start: 20220728
  2. FUROSEMIDE [Concomitant]
     Active Substance: FUROSEMIDE
     Indication: Hypertension
     Dosage: 40.0 MG DE , FORM STRENGTH :   40 MG TABLETS EFG, 30 TABLETS
     Dates: start: 20220118
  3. OMEPRAZOLE CINFAMED [Concomitant]
     Indication: Alcohol abuse
     Dosage: 20.0 MG A-DE , FORM STRENGTH :  20 MG HARD GASTRO-RESISTANT CAPSULES EFG, 56 CAPSULES
     Dates: start: 20191115
  4. VINORELBINE [Concomitant]
     Active Substance: VINORELBINE TARTRATE
     Indication: Lung neoplasm malignant
     Dosage: 110.0 MG CADA 7 DIAS ,  VINORELBINE (2583A)
     Dates: start: 20220728
  5. ENALAPRIL MALEATE\NITRENDIPINE [Concomitant]
     Active Substance: ENALAPRIL MALEATE\NITRENDIPINE
     Indication: Myocardial ischaemia
     Dosage: 20.0 MG DE ,   10 MG/20 MG TABLETS, 30 TABLETS
     Dates: start: 20161125
  6. TICAGRELOR [Concomitant]
     Active Substance: TICAGRELOR
     Indication: Acute myocardial infarction
     Dosage: 90.0 MG C/12 H , FORM STRENGTH :   90 MG , 56 TABLETS
     Dates: start: 20220711
  7. ACLIDINIUM BROMIDE\FORMOTEROL FUMARATE [Concomitant]
     Active Substance: ACLIDINIUM BROMIDE\FORMOTEROL FUMARATE
     Indication: Pneumonia
     Dosage: 2.0 PUFF C/12 H ,   340/12 MICROGRAMS INHALATION POWDER 60 DOSES
     Dates: start: 20220209
  8. CRESTOR [Concomitant]
     Active Substance: ROSUVASTATIN CALCIUM
     Indication: Myocardial ischaemia
     Dosage: 20.0 MG CE , FORM STRENGTH :  20 MG , 28 TABLETS
     Dates: start: 20211202
  9. RANEXA [Concomitant]
     Active Substance: RANOLAZINE
     Indication: Myocardial ischaemia
     Dosage: 500.0 MG C/12 H , FORM STRENGTH :  500 MG , 60 TABLETS
     Dates: start: 20220712
  10. ATROVENT [Concomitant]
     Active Substance: IPRATROPIUM BROMIDE
     Indication: Pneumonia
     Dosage: 40.0 MCG C/6 HORAS ,  FORM STRENGTH : 20 MICROGRAMS PRESSURE INHALATION SOLUTION, 1 INHALER OF 200 D
     Dates: start: 20220209
  11. ALOPURINOL CINFAMED [Concomitant]
     Indication: Gout
     Dosage: 300.0 MG DE , FORM STRENGTH :  300 MG EFG TABLETS, 30 TABLETS
     Dates: start: 20121212
  12. IVABRADINE HYDROCHLORIDE [Concomitant]
     Active Substance: IVABRADINE HYDROCHLORIDE
     Indication: Myocardial ischaemia
     Dosage: 7.5 MG DECE , FORM STRENGTH :  7.5 MG FILM-COATED TABLETS, 56 TABLETS
     Dates: start: 20170628
  13. NEBIVOLOL HYDROCHLORIDE [Concomitant]
     Active Substance: NEBIVOLOL HYDROCHLORIDE
     Indication: Myocardial ischaemia
     Dosage: 5.0 MG CE ,  FORM STRENGTH : 5 MG TABLETS, 28 TABLETS
     Dates: start: 20101214
  14. ASPIRIN [Concomitant]
     Active Substance: ASPIRIN
     Indication: Myocardial ischaemia
     Dosage: 100.0 MG DE,  FORM STRENGTH : 100 MG TABLETS, 30 TABLETS
     Dates: start: 20190416
  15. DAIVOBET [Concomitant]
     Active Substance: BETAMETHASONE DIPROPIONATE\CALCIPOTRIENE
     Indication: Eczema
     Dosage: 1.0 APLIC A-DECE  ,  50 MICROGRAMS/0.5 MG/G GEL, 1 TUBE OF 80 G
     Dates: start: 20211005

REACTIONS (2)
  - Neutropenia [Fatal]
  - Septic shock [Fatal]

NARRATIVE: CASE EVENT DATE: 20220809
